FAERS Safety Report 7187290-X (Version None)
Quarter: 2010Q4

REPORT INFORMATION
  Report Type: 
  Country: None (occurrence: None)
  Receive Date: 20101222
  Receipt Date: 20101221
  Transmission Date: 20110411
  Serious: Yes (Life-Threatening, Other)
  Sender: FDA-Public Use
  Company Number: US-ABBOTT-10P-163-0691854-00

PATIENT

DRUGS (1)
  1. DEPAKOTE [Suspect]
     Indication: CONVULSION

REACTIONS (2)
  - CONVULSION [None]
  - DRUG DISPENSING ERROR [None]
